FAERS Safety Report 4701798-5 (Version None)
Quarter: 2005Q2

REPORT INFORMATION
  Report Type: 
  Country: None (occurrence: None)
  Receive Date: 20050627
  Receipt Date: 20050616
  Transmission Date: 20051028
  Serious: Yes (Hospitalization, Other)
  Sender: FDA-Public Use
  Company Number: 2005078565

PATIENT
  Age: 84 Year
  Sex: Female
  Weight: 63.05 kg

DRUGS (11)
  1. CELEBREX [Suspect]
     Indication: OSTEOARTHRITIS
     Dosage: 200 MG (200 MG, 1 IN 1 D), ORAL
     Route: 048
  2. CELEBREX [Suspect]
     Indication: OSTEOPOROSIS
     Dosage: 200 MG (200 MG, 1 IN 1 D), ORAL
     Route: 048
  3. SALSALATE (SALSALATE) [Suspect]
     Indication: OSTEOARTHRITIS
     Dosage: 1500 MG ( 750 MG, 2 IN 1 D)
  4. SALSALATE (SALSALATE) [Suspect]
     Indication: OSTEOPOROSIS
     Dosage: 1500 MG ( 750 MG, 2 IN 1 D)
  5. TIAZAC [Concomitant]
  6. COZAAR [Concomitant]
  7. NITROGLYCERIN [Concomitant]
  8. SYNTHROID [Concomitant]
  9. LASIX (FUROSSEMIDE) [Concomitant]
  10. ZANTAC [Concomitant]
  11. LOPRESSOR [Concomitant]

REACTIONS (9)
  - ARTHRITIS [None]
  - COLON CANCER [None]
  - CORONARY ARTERY DISEASE [None]
  - GASTROINTESTINAL DISORDER [None]
  - PARKINSON'S DISEASE [None]
  - PERIPHERAL VASCULAR DISORDER [None]
  - PERITONITIS [None]
  - PROCEDURAL COMPLICATION [None]
  - SURGICAL PROCEDURE REPEATED [None]
